FAERS Safety Report 7227117-0 (Version None)
Quarter: 2011Q1

REPORT INFORMATION
  Report Type: 
  Country: None (occurrence: None)
  Receive Date: 20110114
  Receipt Date: 20110106
  Transmission Date: 20110831
  Serious: Yes (Death, Life-Threatening, Hospitalization)
  Sender: FDA-Public Use
  Company Number: FR-PFIZER INC-2011008103

PATIENT
  Age: 81 Year
  Sex: Female

DRUGS (3)
  1. CORDARONE [Suspect]
     Indication: ATRIAL FIBRILLATION
     Dosage: 200 MG, 1X/DAY
     Route: 048
     Dates: start: 20100801
  2. LEVOTHYROX [Concomitant]
     Indication: HYPOTHYROIDISM
     Dosage: UNK
     Route: 065
  3. FERROUS SULFATE [Concomitant]
     Indication: RECTAL HAEMORRHAGE
     Dosage: UNK
     Route: 065

REACTIONS (3)
  - GENERALISED OEDEMA [None]
  - HYPOTHYROIDISM [None]
  - CARDIAC FAILURE [None]
